FAERS Safety Report 4988710-9 (Version None)
Quarter: 2006Q2

REPORT INFORMATION
  Report Type: 
  Country: None (occurrence: None)
  Receive Date: 20060426
  Receipt Date: 20060410
  Transmission Date: 20061013
  Serious: Yes (Other)
  Sender: FDA-Public Use
  Company Number: DSA_28046_2006

PATIENT
  Age: 46 Year
  Sex: Male

DRUGS (2)
  1. ENALAPRIL MALEATE [Suspect]
     Indication: HYPERTENSION
     Dosage: 10 MG QD PO
     Route: 048
     Dates: start: 20060401, end: 20060401
  2. CYNOMEL [Concomitant]

REACTIONS (3)
  - APNOEA [None]
  - BLOOD PRESSURE INCREASED [None]
  - LARYNGEAL OEDEMA [None]
